FAERS Safety Report 5139924-9 (Version None)
Quarter: 2006Q4

REPORT INFORMATION
  Report Type: 
  Country: None (occurrence: None)
  Receive Date: 20061031
  Receipt Date: 20060303
  Transmission Date: 20070319
  Serious: Yes (Hospitalization)
  Sender: FDA-Public Use
  Company Number: US-ELI_LILLY_AND_COMPANY-US200603003924

PATIENT
  Age: 35 Year
  Sex: Female
  Weight: 156.46 kg

DRUGS (2)
  1. ORAL CONTRACEPTIVE NOS [Concomitant]
     Route: 048
     Dates: start: 19810101, end: 20040101
  2. ZYPREXA [Suspect]
     Indication: BIPOLAR DISORDER
     Dosage: 15 MG, UNK
     Route: 048
     Dates: end: 20030101

REACTIONS (4)
  - CARDIAC DISORDER [None]
  - CEREBROVASCULAR DISORDER [None]
  - DIABETES MELLITUS [None]
  - METABOLIC DISORDER [None]
